FAERS Safety Report 18902456 (Version 2)
Quarter: 2021Q1

REPORT INFORMATION
  Report Type: Spontaneous
  Country: US (occurrence: US)
  Receive Date: 20210216
  Receipt Date: 20210316
  Transmission Date: 20210420
  Serious: Yes (Hospitalization)
  Sender: FDA-Public Use
  Company Number: US-ELI_LILLY_AND_COMPANY-US202102003923

PATIENT
  Age: 73 Year
  Sex: Male
  Weight: 122 kg

DRUGS (1)
  1. BAMLANIVIMAB 700MG [Suspect]
     Active Substance: BAMLANIVIMAB
     Indication: COVID-19
     Dosage: 700 MG, SINGLE
     Route: 042
     Dates: start: 20210130, end: 20210130

REACTIONS (2)
  - Acute kidney injury [Recovered/Resolved]
  - COVID-19 pneumonia [Unknown]

NARRATIVE: CASE EVENT DATE: 20210130
